FAERS Safety Report 10334677 (Version 2)
Quarter: 2014Q3

REPORT INFORMATION
  Report Type: Spontaneous
  Country: US (occurrence: None)
  Receive Date: 20140721
  Receipt Date: 20140729
  Transmission Date: 20150326
  Serious: Yes (Hospitalization)
  Sender: FDA-Public Use
  Company Number: AUR-APL-2014-07688

PATIENT
  Age: 64 Year
  Sex: Female

DRUGS (3)
  1. RIBAVIRIN. [Suspect]
     Active Substance: RIBAVIRIN
     Indication: HEPATITIS C
  2. PEGYLATED INTERFERON ALPHA NOS [Suspect]
     Active Substance: PEGINTERFERON ALFA-2A OR PEGINTERFERON ALFA-2B
     Indication: HEPATITIS C
  3. TELAPREVIR (TELAPREVIR) [Suspect]
     Active Substance: TELAPREVIR
     Indication: HEPATITIS C

REACTIONS (17)
  - Condition aggravated [None]
  - Blood iron increased [None]
  - Hypotension [None]
  - Thrombocytopenia [None]
  - Serum ferritin increased [None]
  - Leukopenia [None]
  - Palpitations [None]
  - Fatigue [None]
  - Asthenia [None]
  - Chest discomfort [None]
  - Haemolytic anaemia [None]
  - Dizziness [None]
  - Transferrin saturation increased [None]
  - Dyspnoea exertional [None]
  - Haptoglobin decreased [None]
  - Tachycardia [None]
  - Bone marrow failure [None]
